FAERS Safety Report 4753349-7 (Version None)
Quarter: 2005Q3

REPORT INFORMATION
  Report Type: 
  Country: None (occurrence: None)
  Receive Date: 20050826
  Receipt Date: 20050817
  Transmission Date: 20060218
  Serious: Yes (Hospitalization, Other)
  Sender: FDA-Public Use
  Company Number: JP-JNJFOC-20050502674

PATIENT
  Sex: Female

DRUGS (11)
  1. REMICADE [Suspect]
     Route: 042
  2. REMICADE [Suspect]
     Route: 042
  3. REMICADE [Suspect]
     Indication: RHEUMATOID ARTHRITIS
     Route: 042
  4. RHEUMATREX [Concomitant]
     Route: 048
  5. RHEUMATREX [Concomitant]
     Indication: RHEUMATOID ARTHRITIS
     Route: 048
  6. LOXONIN [Concomitant]
     Indication: RHEUMATOID ARTHRITIS
     Dosage: 2T
     Route: 048
  7. LEUCOVORIN [Concomitant]
     Indication: RHEUMATOID ARTHRITIS
     Dosage: 1T
     Route: 048
  8. TAKEPRON [Concomitant]
     Indication: RHEUMATOID ARTHRITIS
     Route: 048
  9. NORVASC [Concomitant]
     Indication: RHEUMATOID ARTHRITIS
     Route: 048
  10. PREDONINE [Concomitant]
     Indication: RHEUMATOID ARTHRITIS
     Route: 048
  11. ADRENAL HORMONE PREPARATIONS [Concomitant]
     Indication: RHEUMATOID ARTHRITIS

REACTIONS (2)
  - ARTHRALGIA [None]
  - CERVICAL GLAND TUBERCULOSIS [None]
